FAERS Safety Report 4821645-0 (Version None)
Quarter: 2005Q4

REPORT INFORMATION
  Report Type: 
  Country: None (occurrence: None)
  Receive Date: 20051107
  Receipt Date: 20051102
  Transmission Date: 20060501
  Serious: Yes (Death, Life-Threatening, Hospitalization, Other)
  Sender: FDA-Public Use
  Company Number: 2005PK02033

PATIENT
  Age: 55 Year
  Sex: Male
  Weight: 65 kg

DRUGS (6)
  1. OMEPRAZOLE [Suspect]
     Indication: PROPHYLAXIS
     Route: 042
     Dates: start: 20051019, end: 20051022
  2. AMBISOME [Suspect]
     Indication: FUNGAL INFECTION
     Route: 042
     Dates: start: 20050528, end: 20051021
  3. TACROLIMUS [Suspect]
     Indication: GRAFT VERSUS HOST DISEASE
     Dosage: 1 - 2 MG
     Route: 048
     Dates: start: 20050825, end: 20051022
  4. CIPROBAY [Suspect]
     Indication: PYREXIA
     Route: 042
     Dates: start: 20051018, end: 20051022
  5. TORRAMYCIN [Concomitant]
     Indication: INFECTION
     Route: 042
     Dates: end: 20050914
  6. POSACONAZOLE [Concomitant]
     Indication: MUCORMYCOSIS
     Route: 048
     Dates: start: 20050502, end: 20051023

REACTIONS (5)
  - ANURIA [None]
  - ASPIRATION [None]
  - CONVULSION [None]
  - MULTI-ORGAN FAILURE [None]
  - RENAL FAILURE ACUTE [None]
